FAERS Safety Report 22016571 (Version 1)
Quarter: 2023Q1

REPORT INFORMATION
  Report Type: Spontaneous
  Country: US (occurrence: None)
  Receive Date: 20230217
  Receipt Date: 20230217
  Transmission Date: 20230417
  Serious: Yes (Other)
  Sender: FDA-Public Use
  Company Number: None

PATIENT
  Age: 54 Year
  Sex: Female

DRUGS (14)
  1. AMBRISENTAN [Suspect]
     Active Substance: AMBRISENTAN
     Indication: Pulmonary arterial hypertension
     Dosage: FREQUENCY : DAILY;?
     Route: 048
     Dates: start: 20191216
  2. TADALAFIL [Concomitant]
     Active Substance: TADALAFIL
  3. GABAPENTIN [Concomitant]
     Active Substance: GABAPENTIN
  4. BUPROPION [Concomitant]
     Active Substance: BUPROPION
  5. TRAZODONE [Concomitant]
     Active Substance: TRAZODONE HYDROCHLORIDE
  6. ALBUTEROL SULFATE [Concomitant]
     Active Substance: ALBUTEROL SULFATE
  7. BUSPIRONE [Concomitant]
     Active Substance: BUSPIRONE HYDROCHLORIDE
  8. EPIPEN [Concomitant]
     Active Substance: EPINEPHRINE
  9. VITAMIN C [Concomitant]
     Active Substance: ASCORBIC ACID
  10. FERROUS SULFATE [Concomitant]
     Active Substance: FERROUS SULFATE
  11. TOPIRAMATE [Concomitant]
     Active Substance: TOPIRAMATE
  12. TORSEMIDE [Concomitant]
     Active Substance: TORSEMIDE
  13. POTASSIUM CHLORIDE [Concomitant]
     Active Substance: POTASSIUM CHLORIDE
  14. alvesco HFA [Concomitant]

REACTIONS (6)
  - Bronchitis [None]
  - Headache [None]
  - Myalgia [None]
  - Hypoaesthesia [None]
  - Paraesthesia [None]
  - Neuralgia [None]

NARRATIVE: CASE EVENT DATE: 20230125
